FAERS Safety Report 25816492 (Version 2)
Quarter: 2025Q4

REPORT INFORMATION
  Report Type: Spontaneous
  Country: US (occurrence: US)
  Receive Date: 20250918
  Receipt Date: 20251105
  Transmission Date: 20260117
  Serious: Yes (Hospitalization)
  Sender: SANOFI AVENTIS
  Company Number: US-SA-2025SA159179

PATIENT
  Age: 1 Year
  Sex: Female

DRUGS (1)
  1. DUPIXENT [Suspect]
     Active Substance: DUPILUMAB
     Indication: Dermatitis atopic
     Dosage: 200 MG, Q4W
     Route: 058
     Dates: start: 202506

REACTIONS (6)
  - Viral skin infection [Unknown]
  - Oral viral infection [Unknown]
  - Localised infection [Unknown]
  - Skin hyperpigmentation [Unknown]
  - Herpes simplex [Unknown]
  - Rash [Unknown]

NARRATIVE: CASE EVENT DATE: 20250101
